FAERS Safety Report 16109045 (Version 2)
Quarter: 2019Q2

REPORT INFORMATION
  Report Type: Spontaneous
  Country: US (occurrence: US)
  Receive Date: 20190323
  Receipt Date: 20190415
  Transmission Date: 20190711
  Serious: Yes (Hospitalization, Other)
  Sender: FDA-Public Use
  Company Number: US-AMGEN-USASP2019043386

PATIENT
  Age: 88 Year
  Sex: Male
  Weight: 58.96 kg

DRUGS (6)
  1. TUMS [Concomitant]
     Active Substance: CALCIUM CARBONATE
     Dosage: 100.0 GRAM, TID
     Route: 042
  2. FOSAMAX [Concomitant]
     Active Substance: ALENDRONATE SODIUM
     Indication: OSTEOPOROSIS
  3. LASIX [Concomitant]
     Active Substance: FUROSEMIDE
     Indication: HYPERTENSION
     Dosage: 40 MILLIGRAM, BID
  4. PROLIA [Suspect]
     Active Substance: DENOSUMAB
     Indication: OSTEOPOROSIS
     Dosage: 60 MILLIGRAM, Q6MO
     Route: 058
     Dates: start: 20180618
  5. CALCITROL [CALCITRIOL] [Concomitant]
     Dosage: 0.5 MILLIGRAM, QD
     Route: 042
  6. MVI [VITAMINS NOS] [Concomitant]
     Dosage: UNK UNK, QD

REACTIONS (4)
  - Blood calcium decreased [Recovered/Resolved]
  - Rib fracture [Recovered/Resolved]
  - Balance disorder [Recovered/Resolved]
  - Fall [Unknown]

NARRATIVE: CASE EVENT DATE: 20180705
